FAERS Safety Report 5831850-2 (Version None)
Quarter: 2008Q3

REPORT INFORMATION
  Report Type: 
  Country: None (occurrence: None)
  Receive Date: 20080731
  Receipt Date: 20080724
  Transmission Date: 20090109
  Serious: Yes (Life-Threatening)
  Sender: FDA-Public Use
  Company Number: 2008TJ0178

PATIENT
  Sex: Male

DRUGS (1)
  1. TWINJECT (EPINEPHRINE) 0.15 MG [Suspect]
     Indication: FOOD ALLERGY
     Dosage: 0.15 MG, SUBCUTANEOUS/INTRAMUSCULAR
     Route: 058
     Dates: start: 20080323, end: 20080323

REACTIONS (2)
  - DEVICE MALFUNCTION [None]
  - PHARMACEUTICAL PRODUCT COMPLAINT [None]
